FAERS Safety Report 4799984-1 (Version None)
Quarter: 2005Q4

REPORT INFORMATION
  Report Type: 
  Country: None (occurrence: None)
  Receive Date: 20051013
  Receipt Date: 20050930
  Transmission Date: 20060501
  Serious: Yes (Hospitalization)
  Sender: FDA-Public Use
  Company Number: 2005P1000429

PATIENT
  Age: 72 Year
  Sex: Female
  Weight: 58 kg

DRUGS (11)
  1. RETEVASE [Suspect]
     Indication: ACUTE MYOCARDIAL INFARCTION
     Dosage: IV
     Route: 042
     Dates: start: 20041226, end: 20041226
  2. ABCIXIMAB (ABCIXIMAB) [Suspect]
     Indication: ACUTE MYOCARDIAL INFARCTION
     Dosage: IV
     Route: 042
     Dates: start: 20041226
  3. ASPIRIN [Concomitant]
  4. VERAPAMIL [Concomitant]
  5. RAMIPRIL [Concomitant]
  6. FUROSEMIDE [Concomitant]
  7. SIMVASTATIN [Concomitant]
  8. THEOPHYLLINE [Concomitant]
  9. FURON [Concomitant]
  10. IPRATROPIUM BROMIDE [Concomitant]
  11. OXYMETAZOLINE [Concomitant]

REACTIONS (7)
  - ACQUIRED DIAPHRAGMATIC EVENTRATION [None]
  - ADHESION [None]
  - CHRONIC OBSTRUCTIVE PULMONARY DISEASE [None]
  - CONDITION AGGRAVATED [None]
  - EMPHYSEMA [None]
  - HAEMATOCRIT DECREASED [None]
  - HIATUS HERNIA [None]
